FAERS Safety Report 5220809-4 (Version None)
Quarter: 2007Q1

REPORT INFORMATION
  Report Type: 
  Country: None (occurrence: None)
  Receive Date: 20070126
  Receipt Date: 20070115
  Transmission Date: 20070707
  Serious: Yes (Other)
  Sender: FDA-Public Use
  Company Number: PHNU2006DE03476

PATIENT
  Age: 72 Year
  Sex: Male
  Weight: 80 kg

DRUGS (1)
  1. ZOMETA [Suspect]
     Indication: PROSTATE CANCER
     Dosage: 4 MG, UNK
     Route: 042
     Dates: start: 20060504, end: 20060824

REACTIONS (4)
  - BIOPSY SITE UNSPECIFIED ABNORMAL [None]
  - DENTAL OPERATION [None]
  - OSTEOMYELITIS [None]
  - OSTEONECROSIS [None]
